FAERS Safety Report 4363193-0 (Version None)
Quarter: 2004Q2

REPORT INFORMATION
  Report Type: 
  Country: None (occurrence: None)
  Receive Date: 20040518
  Receipt Date: 20040427
  Transmission Date: 20050107
  Serious: Yes (Other)
  Sender: FDA-Public Use
  Company Number: CA-JNJFOC-20040502767

PATIENT
  Sex: Male

DRUGS (1)
  1. CONCERTA [Suspect]
     Dosage: 54 MG, ORAL
     Route: 048

REACTIONS (2)
  - INTENTIONAL MISUSE [None]
  - MEDICATION ERROR [None]
